FAERS Safety Report 5982948-X (Version None)
Quarter: 2008Q4

REPORT INFORMATION
  Report Type: 
  Country: None (occurrence: None)
  Receive Date: 20081208
  Receipt Date: 20080303
  Transmission Date: 20090506
  Serious: Yes (Other)
  Sender: FDA-Public Use
  Company Number: US-AMGEN-STX255020

PATIENT
  Sex: Female
  Weight: 58.6 kg

DRUGS (2)
  1. ENBREL [Suspect]
     Indication: RHEUMATOID ARTHRITIS
     Route: 065
     Dates: start: 20020101, end: 20071101
  2. METHOTREXATE [Concomitant]
     Route: 048
     Dates: end: 20070101

REACTIONS (1)
  - LEUKOENCEPHALOPATHY [None]
